FAERS Safety Report 11096643 (Version 1)
Quarter: 2015Q2

REPORT INFORMATION
  Report Type: Spontaneous
  Country: US (occurrence: US)
  Receive Date: 20150507
  Receipt Date: 20150507
  Transmission Date: 20150821
  Serious: No
  Sender: FDA-Public Use
  Company Number: US-LEO PHARMA-224302

PATIENT
  Age: 48 Year
  Sex: Female

DRUGS (1)
  1. DAIVOBET [Suspect]
     Active Substance: BETAMETHASONE DIPROPIONATE\CALCIPOTRIENE
     Indication: PSORIASIS
     Route: 061
     Dates: start: 20130821

REACTIONS (4)
  - Coordination abnormal [Recovering/Resolving]
  - Medication residue present [Recovering/Resolving]
  - Headache [Recovering/Resolving]
  - Dizziness [Recovering/Resolving]

NARRATIVE: CASE EVENT DATE: 20130822
